FAERS Safety Report 7986507-9 (Version None)
Quarter: 2011Q4

REPORT INFORMATION
  Report Type: 
  Country: None (occurrence: None)
  Receive Date: 20111216
  Receipt Date: 20110202
  Transmission Date: 20120403
  Serious: No
  Sender: FDA-Public Use
  Company Number: US-BRISTOL-MYERS SQUIBB COMPANY-15525835

PATIENT
  Age: 66 Year
  Sex: Female

DRUGS (1)
  1. ABILIFY [Suspect]
     Dates: end: 20110119

REACTIONS (1)
  - DYSKINESIA [None]
